FAERS Safety Report 17621526 (Version 3)
Quarter: 2020Q2

REPORT INFORMATION
  Report Type: Spontaneous
  Country: PL (occurrence: PL)
  Receive Date: 20200403
  Receipt Date: 20200427
  Transmission Date: 20200713
  Serious: Yes (Other)
  Sender: FDA-Public Use
  Company Number: PL-PFIZER INC-2020135048

PATIENT
  Age: 73 Year
  Sex: Female

DRUGS (1)
  1. FLUCONAZOLE. [Suspect]
     Active Substance: FLUCONAZOLE
     Dosage: UNK
     Route: 042

REACTIONS (5)
  - Skin maceration [Unknown]
  - Faecal vomiting [Unknown]
  - Pneumonitis [Unknown]
  - Dyspnoea [Unknown]
  - Disease progression [Unknown]
